FAERS Safety Report 4602434-9 (Version None)
Quarter: 2005Q1

REPORT INFORMATION
  Report Type: 
  Country: None (occurrence: None)
  Receive Date: 20050222
  Receipt Date: 20050222
  Transmission Date: 20050727
  Serious: Yes (Hospitalization)
  Sender: FDA-Public Use
  Company Number: None

PATIENT
  Age: 73 Year
  Sex: Male
  Weight: 68.5 kg

DRUGS (4)
  1. CETUXIMAB [Suspect]
     Indication: OESOPHAGEAL CARCINOMA
     Dosage: 472 MG Q  IV X 6
     Route: 042
     Dates: start: 20041221, end: 20050125
  2. CARBOPLATIN [Suspect]
     Indication: OESOPHAGEAL CARCINOMA
     Dosage: 23 MG QW IV X6
     Route: 042
     Dates: start: 20041221, end: 20050125
  3. TAXOL [Suspect]
     Indication: OESOPHAGEAL CARCINOMA
     Dosage: 50 MG/M2   , 95 MG QW IV X 6
     Route: 042
     Dates: start: 20041221, end: 20050125
  4. RADIATION THERAPY [Concomitant]

REACTIONS (7)
  - ATRIAL FLUTTER [None]
  - ATRIOVENTRICULAR BLOCK [None]
  - CHEST DISCOMFORT [None]
  - DEHYDRATION [None]
  - ODYNOPHAGIA [None]
  - PAINFUL RESPIRATION [None]
  - RASH [None]
